FAERS Safety Report 17250421 (Version 5)
Quarter: 2024Q3

REPORT INFORMATION
  Report Type: Spontaneous
  Country: CA (occurrence: CA)
  Receive Date: 20200109
  Receipt Date: 20240923
  Transmission Date: 20241017
  Serious: Yes (Hospitalization)
  Sender: ROCHE
  Company Number: CA-ROCHE-2513880

PATIENT
  Age: 73 Year
  Sex: Male

DRUGS (13)
  1. ACTEMRA [Interacting]
     Active Substance: TOCILIZUMAB
     Indication: Product used for unknown indication
     Route: 065
  2. COSENTYX [Interacting]
     Active Substance: SECUKINUMAB
     Indication: Psoriasis
     Route: 058
  3. COSENTYX [Interacting]
     Active Substance: SECUKINUMAB
     Route: 058
  4. COSENTYX [Interacting]
     Active Substance: SECUKINUMAB
     Route: 058
  5. COSENTYX [Interacting]
     Active Substance: SECUKINUMAB
     Route: 058
  6. COSENTYX [Interacting]
     Active Substance: SECUKINUMAB
     Route: 058
  7. COSENTYX [Interacting]
     Active Substance: SECUKINUMAB
     Route: 058
  8. COSENTYX [Interacting]
     Active Substance: SECUKINUMAB
     Route: 058
  9. COSENTYX [Interacting]
     Active Substance: SECUKINUMAB
     Route: 058
  10. COSENTYX [Interacting]
     Active Substance: SECUKINUMAB
     Route: 058
  11. METHOTREXATE [Interacting]
     Active Substance: METHOTREXATE
     Indication: Product used for unknown indication
     Route: 065
  12. DOXYCYCLINE [Concomitant]
     Active Substance: DOXYCYCLINE\DOXYCYCLINE HYCLATE
     Indication: Product used for unknown indication
     Route: 065
  13. ENBREL [Concomitant]
     Active Substance: ETANERCEPT
     Indication: Product used for unknown indication
     Route: 065

REACTIONS (16)
  - Abscess limb [Not Recovered/Not Resolved]
  - Drug ineffective [Unknown]
  - Drug interaction [Unknown]
  - Infection [Not Recovered/Not Resolved]
  - Psoriasis [Not Recovered/Not Resolved]
  - Skin plaque [Not Recovered/Not Resolved]
  - Disease progression [Not Recovered/Not Resolved]
  - Pruritus [Not Recovered/Not Resolved]
  - Acne [Not Recovered/Not Resolved]
  - Cardiac disorder [Not Recovered/Not Resolved]
  - Inappropriate schedule of product administration [Unknown]
  - Pain [Not Recovered/Not Resolved]
  - Pain of skin [Not Recovered/Not Resolved]
  - Amnesia [Not Recovered/Not Resolved]
  - Disorganised speech [Not Recovered/Not Resolved]
  - Product dose omission issue [Not Recovered/Not Resolved]
